FAERS Safety Report 10197497 (Version 1)
Quarter: 2014Q2

REPORT INFORMATION
  Report Type: Spontaneous
  Country: US (occurrence: None)
  Receive Date: 20140523
  Receipt Date: 20140523
  Transmission Date: 20141212
  Serious: Yes (Life-Threatening, Hospitalization, Disabling, Other)
  Sender: FDA-Public Use
  Company Number: None

PATIENT
  Age: 36 Year
  Sex: Female
  Weight: 98.43 kg

DRUGS (6)
  1. LAMICTAL [Suspect]
     Indication: PETIT MAL EPILEPSY
     Dosage: 100 MG (2XDAY) (200 MG), 2 PILLS, ONE DAY/ONE BED 2 (TWICE) DAILY, BY MOUTH
     Route: 048
     Dates: start: 20020915
  2. VALTREX 500MG FILMTABLETTEN [Concomitant]
  3. LATUDA 40MG [Concomitant]
  4. PRILOSEC 20MG [Concomitant]
  5. MELATONIN 3MG [Concomitant]
  6. BENADRYL 25MG [Concomitant]

REACTIONS (3)
  - Erythema multiforme [None]
  - Muscle tightness [None]
  - Anger [None]
